FAERS Safety Report 6807459-0 (Version None)
Quarter: 2010Q2

REPORT INFORMATION
  Report Type: 
  Country: None (occurrence: None)
  Receive Date: 20100625
  Receipt Date: 20100608
  Transmission Date: 20101027
  Serious: Yes (Other)
  Sender: FDA-Public Use
  Company Number: US 317052

PATIENT
  Sex: Female

DRUGS (2)
  1. KINERET [Suspect]
     Indication: JUVENILE ARTHRITIS
  2. CORTICOSTEROIDS [Concomitant]

REACTIONS (4)
  - ACUTE HEPATIC FAILURE [None]
  - HEPATITIS ACUTE [None]
  - HEPATOTOXICITY [None]
  - TRANSAMINASES INCREASED [None]
